FAERS Safety Report 11204179 (Version 1)
Quarter: 2015Q2

REPORT INFORMATION
  Report Type: Spontaneous
  Country: US (occurrence: US)
  Receive Date: 20150620
  Receipt Date: 20150620
  Transmission Date: 20150821
  Serious: No
  Sender: FDA-Public Use
  Company Number: US-ASTRAZENECA-2015SE56419

PATIENT
  Sex: Female

DRUGS (1)
  1. BYDUREON [Suspect]
     Active Substance: EXENATIDE
     Indication: DIABETES MELLITUS
     Route: 058

REACTIONS (6)
  - Depressed mood [Unknown]
  - Nervousness [Unknown]
  - Decreased appetite [Unknown]
  - Rash pruritic [Unknown]
  - Nausea [Unknown]
  - Abdominal discomfort [Unknown]
